FAERS Safety Report 9717655 (Version 1)
Quarter: 2013Q4

REPORT INFORMATION
  Report Type: Spontaneous
  Country: CH (occurrence: CH)
  Receive Date: 20131127
  Receipt Date: 20131127
  Transmission Date: 20140711
  Serious: Yes (Hospitalization)
  Sender: FDA-Public Use
  Company Number: CH-ASTRAZENECA-2013SE85717

PATIENT
  Age: 88 Year
  Sex: Female
  Weight: 57.6 kg

DRUGS (9)
  1. ZESTORETIC [Suspect]
     Indication: ESSENTIAL HYPERTENSION
     Dosage: 10+12.5 MG, DAILY
     Route: 048
     Dates: start: 20130611, end: 20130630
  2. SINTROM [Concomitant]
     Indication: ATRIAL FIBRILLATION
     Dosage: UNKNOWN, DAILY
     Route: 048
     Dates: start: 201301
  3. SINTROM [Concomitant]
     Indication: ATRIAL FLUTTER
     Dosage: UNKNOWN, DAILY
     Route: 048
     Dates: start: 201301
  4. NEXIUM [Concomitant]
     Route: 048
     Dates: start: 201012
  5. SIMCORA [Concomitant]
     Indication: HYPERCHOLESTEROLAEMIA
     Route: 048
     Dates: start: 20101129
  6. PAROXETIN [Concomitant]
     Route: 048
  7. EUTHYROX [Concomitant]
     Indication: HYPOTHYROIDISM
     Route: 048
     Dates: start: 1997
  8. FOSAMAX [Concomitant]
     Indication: OSTEOPOROSIS
     Route: 048
     Dates: start: 20130812
  9. CALCIMAGON [Concomitant]
     Indication: OSTEOPOROSIS
     Route: 048

REACTIONS (3)
  - Dysphagia [Unknown]
  - Angioedema [Recovered/Resolved]
  - Urticaria [Unknown]
